FAERS Safety Report 6057715-1 (Version None)
Quarter: 2009Q1

REPORT INFORMATION
  Report Type: 
  Country: None (occurrence: None)
  Receive Date: 20090129
  Receipt Date: 20090122
  Transmission Date: 20090719
  Serious: Yes (Other)
  Sender: FDA-Public Use
  Company Number: GB-ASTRAZENECA-2008GB02326

PATIENT
  Age: 57 Year
  Sex: Female
  Weight: 98 kg

DRUGS (1)
  1. OMEPRAZOLE [Suspect]
     Indication: GASTROOESOPHAGEAL REFLUX DISEASE
     Dosage: DETAILS NOT KNOWN AS PRESCRIBED BY PATIENT'S GENERAL PRACTITIONER
     Route: 048
     Dates: start: 20081001

REACTIONS (4)
  - BREAST ENLARGEMENT [None]
  - BREAST TENDERNESS [None]
  - ENDOMETRIAL DISORDER [None]
  - POSTMENOPAUSAL HAEMORRHAGE [None]
